FAERS Safety Report 4296504-5 (Version None)
Quarter: 2004Q1

REPORT INFORMATION
  Report Type: 
  Country: None (occurrence: None)
  Receive Date: 20040126
  Receipt Date: 20030825
  Transmission Date: 20041129
  Serious: No
  Sender: FDA-Public Use
  Company Number: USA030845249

PATIENT
  Age: 13 Year
  Sex: Female
  Weight: 48 kg

DRUGS (3)
  1. STRATTERA [Suspect]
     Dosage: 60 MG/DAY
     Dates: start: 20030801
  2. PREVACID [Concomitant]
  3. ADDERALL 10 [Concomitant]

REACTIONS (2)
  - ABDOMINAL PAIN UPPER [None]
  - COLD SWEAT [None]
